FAERS Safety Report 7773920-8 (Version None)
Quarter: 2011Q3

REPORT INFORMATION
  Report Type: 
  Country: None (occurrence: None)
  Receive Date: 20110923
  Receipt Date: 20110911
  Transmission Date: 20111222
  Serious: Yes (Hospitalization)
  Sender: FDA-Public Use
  Company Number: IL-NOVOPROD-334874

PATIENT

DRUGS (6)
  1. FUSID                              /00032601/ [Concomitant]
  2. ALDOSPIRONE [Concomitant]
  3. VICTOZA [Suspect]
     Dosage: 1.2 MG, QD
     Dates: start: 20110815
  4. SIMVASTATIN [Concomitant]
  5. RAMIPRIL [Concomitant]
  6. VICTOZA [Suspect]
     Indication: TYPE 2 DIABETES MELLITUS
     Dosage: UNK

REACTIONS (2)
  - SUPRAVENTRICULAR TACHYCARDIA [None]
  - PALPITATIONS [None]
